FAERS Safety Report 26035671 (Version 2)
Quarter: 2025Q4

REPORT INFORMATION
  Report Type: Spontaneous
  Country: AU (occurrence: AU)
  Receive Date: 20251112
  Receipt Date: 20251205
  Transmission Date: 20260118
  Serious: Yes (Other)
  Sender: JOHNSON AND JOHNSON
  Company Number: AU-JNJFOC-20251143480

PATIENT
  Sex: Female

DRUGS (1)
  1. SIMPONI [Suspect]
     Active Substance: GOLIMUMAB
     Indication: Product used for unknown indication
     Dosage: STRENGTH 50MG/0.5ML
     Route: 058

REACTIONS (4)
  - Pneumonia [Unknown]
  - Surgery [Unknown]
  - Device defective [Unknown]
  - Product dose omission issue [Unknown]
